FAERS Safety Report 10732572 (Version 2)
Quarter: 2015Q3

REPORT INFORMATION
  Report Type: Spontaneous
  Country: US (occurrence: US)
  Receive Date: 20150123
  Receipt Date: 20150729
  Transmission Date: 20151125
  Serious: Yes (Other)
  Sender: FDA-Public Use
  Company Number: US-GLAXOSMITHKLINE INC.-US2014GSK047679

PATIENT
  Age: 75 Year
  Sex: Female

DRUGS (8)
  1. BUDESONIDE. [Concomitant]
     Active Substance: BUDESONIDE
  2. FOLIC ACID. [Concomitant]
     Active Substance: FOLIC ACID
  3. THYROID MEDICATION [Concomitant]
     Active Substance: UNSPECIFIED INGREDIENT
  4. LISINOPRIL. [Concomitant]
     Active Substance: LISINOPRIL
  5. ANORO ELLIPTA [Suspect]
     Active Substance: UMECLIDINIUM BROMIDE\VILANTEROL TRIFENATATE
     Indication: CHRONIC OBSTRUCTIVE PULMONARY DISEASE
     Dosage: UNK UNK, QD
     Route: 055
     Dates: start: 20141110, end: 20141119
  6. ANORO ELLIPTA [Suspect]
     Active Substance: UMECLIDINIUM BROMIDE\VILANTEROL TRIFENATATE
     Indication: EMPHYSEMA
     Dosage: UNK
  7. FAMOTIDINE. [Concomitant]
     Active Substance: FAMOTIDINE
  8. NEXIUM [Concomitant]
     Active Substance: ESOMEPRAZOLE MAGNESIUM

REACTIONS (13)
  - Vision blurred [Not Recovered/Not Resolved]
  - Palpitations [Unknown]
  - Urine flow decreased [Unknown]
  - Urinary retention [Unknown]
  - Visual field defect [Not Recovered/Not Resolved]
  - Cough [Unknown]
  - Photopsia [Not Recovered/Not Resolved]
  - Sinus disorder [Unknown]
  - Diarrhoea [Unknown]
  - Constipation [Unknown]
  - Neck pain [Not Recovered/Not Resolved]
  - Pain in extremity [Unknown]
  - Photophobia [Not Recovered/Not Resolved]

NARRATIVE: CASE EVENT DATE: 20141110
